FAERS Safety Report 9829737 (Version 1)
Quarter: 2014Q1

REPORT INFORMATION
  Report Type: Spontaneous
  Country: FI (occurrence: FI)
  Receive Date: 20140120
  Receipt Date: 20140120
  Transmission Date: 20141002
  Serious: Yes (Hospitalization)
  Sender: FDA-Public Use
  Company Number: FI-ROCHE-1334777

PATIENT
  Age: 63 Year
  Sex: Female

DRUGS (6)
  1. AVASTIN [Suspect]
     Indication: FALLOPIAN TUBE CANCER STAGE III
     Dosage: 15 MG/KG (1110MG)
     Route: 042
     Dates: start: 20131113
  2. AVASTIN [Suspect]
     Dosage: 15 MG/KG (1110MG)
     Route: 042
     Dates: start: 20131210
  3. AVASTIN [Suspect]
     Dosage: 15 MG/KG (1110MG)
     Route: 042
     Dates: start: 20140102
  4. DIUREX (FINLAND) [Concomitant]
  5. DOCETAXEL [Concomitant]
     Route: 065
     Dates: start: 20140102
  6. CARBOPLATIN [Concomitant]
     Route: 065
     Dates: start: 20140102

REACTIONS (6)
  - Abscess intestinal [Recovering/Resolving]
  - Diverticular perforation [Recovering/Resolving]
  - Pyelonephritis [Unknown]
  - Neutropenia [Unknown]
  - Diarrhoea [Unknown]
  - C-reactive protein increased [Unknown]
